FAERS Safety Report 9187037 (Version 1)
Quarter: 2012Q4

REPORT INFORMATION
  Report Type: 
  Country: US (occurrence: US)
  Receive Date: 20121031
  Receipt Date: 20121031
  Transmission Date: 20130627
  Serious: Yes (Hospitalization, Other)
  Sender: FDA-Public Use
  Company Number: US-JNJFOC-20121016623

PATIENT
  Age: 60 None
  Sex: Female
  Weight: 56.7 kg

DRUGS (11)
  1. SIMPONI [Suspect]
     Indication: ANKYLOSING SPONDYLITIS
     Route: 058
     Dates: start: 20120831, end: 20120831
  2. SIMPONI [Suspect]
     Indication: RHEUMATOID ARTHRITIS
     Route: 058
     Dates: start: 20120831, end: 20120831
  3. PREDNISONE [Suspect]
     Indication: ANKYLOSING SPONDYLITIS
     Route: 048
  4. PREDNISONE [Suspect]
     Indication: ANKYLOSING SPONDYLITIS
     Route: 048
  5. PREDNISONE [Suspect]
     Indication: ANKYLOSING SPONDYLITIS
     Route: 048
  6. PREDNISONE [Suspect]
     Indication: ANKYLOSING SPONDYLITIS
     Route: 048
  7. PREDNISONE [Suspect]
     Indication: RHEUMATOID ARTHRITIS
     Route: 048
  8. PREDNISONE [Suspect]
     Indication: RHEUMATOID ARTHRITIS
     Route: 048
  9. PREDNISONE [Suspect]
     Indication: RHEUMATOID ARTHRITIS
     Route: 048
  10. PREDNISONE [Suspect]
     Indication: RHEUMATOID ARTHRITIS
     Route: 048
  11. MOBIC [Concomitant]
     Route: 065
     Dates: start: 20120512

REACTIONS (11)
  - Meningitis viral [Recovered/Resolved]
  - Ankylosing spondylitis [Unknown]
  - Rheumatoid arthritis [Unknown]
  - Lymphadenopathy [Unknown]
  - Fatigue [Unknown]
  - Asthenia [Unknown]
  - Abdominal distension [Unknown]
  - Sensation of heaviness [Unknown]
  - Pyrexia [Recovered/Resolved]
  - Drug dose omission [Not Recovered/Not Resolved]
  - Pruritus [Unknown]
